FAERS Safety Report 9619404 (Version 2)
Quarter: 2013Q4

REPORT INFORMATION
  Report Type: Spontaneous
  Country: US (occurrence: US)
  Receive Date: 20131014
  Receipt Date: 20131129
  Transmission Date: 20140711
  Serious: No
  Sender: FDA-Public Use
  Company Number: US-PFIZER INC-2013292925

PATIENT
  Age: 57 Year
  Sex: Male
  Weight: 91.61 kg

DRUGS (7)
  1. LYRICA [Suspect]
     Indication: BURNING SENSATION
     Dosage: 150 MG, 3X/DAY
     Route: 048
     Dates: start: 201208
  2. LYRICA [Suspect]
     Indication: PAIN
  3. LOTREL [Concomitant]
     Dosage: UNK
  4. LABETALOL [Concomitant]
     Dosage: UNK
  5. CRESTOR [Concomitant]
     Dosage: UNK
  6. PLAVIX [Concomitant]
     Dosage: UNK
  7. HYDROCHLOROTHIAZIDE [Concomitant]
     Dosage: UNK

REACTIONS (4)
  - Off label use [Not Recovered/Not Resolved]
  - Pain [Not Recovered/Not Resolved]
  - Gait disturbance [Not Recovered/Not Resolved]
  - Feeling jittery [Not Recovered/Not Resolved]
